FAERS Safety Report 25469108 (Version 1)
Quarter: 2025Q2

REPORT INFORMATION
  Report Type: Spontaneous
  Country: US (occurrence: US)
  Receive Date: 20250623
  Receipt Date: 20250623
  Transmission Date: 20250717
  Serious: No
  Sender: ABBVIE
  Company Number: US-ABBVIE-6335333

PATIENT
  Sex: Male

DRUGS (1)
  1. NAMZARIC [Suspect]
     Active Substance: DONEPEZIL HYDROCHLORIDE\MEMANTINE HYDROCHLORIDE
     Indication: Dementia Alzheimer^s type
     Route: 048

REACTIONS (3)
  - Cognitive disorder [Unknown]
  - Frontotemporal dementia [Unknown]
  - Wheelchair user [Unknown]
